FAERS Safety Report 23305777 (Version 1)
Quarter: 2023Q4

REPORT INFORMATION
  Report Type: Spontaneous
  Country: US (occurrence: US)
  Receive Date: 20231218
  Receipt Date: 20231218
  Transmission Date: 20240110
  Serious: No
  Sender: FDA-Public Use
  Company Number: US-SA-SAC20231211000081

PATIENT
  Age: 35 Year

DRUGS (1)
  1. DUPIXENT [Suspect]
     Active Substance: DUPILUMAB
     Indication: Chronic rhinosinusitis with nasal polyps
     Dosage: UNK
     Route: 058
     Dates: end: 20231207

REACTIONS (4)
  - Peripheral swelling [Unknown]
  - Abdominal pain [Unknown]
  - Abdominal distension [Unknown]
  - Muscle spasms [Unknown]
